FAERS Safety Report 9287200 (Version 2)
Quarter: 2013Q4

REPORT INFORMATION
  Report Type: Spontaneous
  Country: US (occurrence: US)
  Receive Date: 20130513
  Receipt Date: 20131028
  Transmission Date: 20140711
  Serious: Yes (Hospitalization)
  Sender: FDA-Public Use
  Company Number: US-B.I. PHARMACEUTICALS,INC./RIDGEFIELD-2013-BI-13192BP

PATIENT
  Age: 83 Year
  Sex: Male
  Weight: 86.18 kg

DRUGS (21)
  1. PRADAXA [Suspect]
     Indication: ANTICOAGULANT THERAPY
     Dates: start: 20110914, end: 20120706
  2. PRADAXA [Suspect]
     Indication: ATRIAL FIBRILLATION
  3. IMDUR [Concomitant]
  4. COREG [Concomitant]
  5. LISINOPRIL [Concomitant]
  6. FLOMAX [Concomitant]
  7. METFORMIN [Concomitant]
  8. GLIPIZIDE [Concomitant]
  9. PROSCAR [Concomitant]
  10. METOPROLOL [Concomitant]
  11. ALBUTEROL [Concomitant]
  12. ADVAIR [Concomitant]
  13. SINGULAIR [Concomitant]
  14. SIMVASTATIN [Concomitant]
  15. ALDACTONE [Concomitant]
  16. VITAMIN B1 [Concomitant]
  17. VITAMIN D [Concomitant]
  18. LORTAB [Concomitant]
  19. BUSPAR [Concomitant]
  20. LASIX [Concomitant]
  21. ASPIRIN [Concomitant]

REACTIONS (2)
  - Gastrointestinal haemorrhage [Unknown]
  - Anaemia [Unknown]
